FAERS Safety Report 26112121 (Version 1)
Quarter: 2025Q4

REPORT INFORMATION
  Report Type: Spontaneous
  Country: US (occurrence: US)
  Receive Date: 20251202
  Receipt Date: 20251202
  Transmission Date: 20260118
  Serious: Yes (Other)
  Sender: STAQ PHARMA, INC
  Company Number: US-STAQ Pharma, Inc-2189606

PATIENT
  Weight: 53.1 kg

DRUGS (4)
  1. KETAMINE HYDROCHLORIDE [Suspect]
     Active Substance: KETAMINE HYDROCHLORIDE
     Indication: Sedation
     Dates: start: 20251115
  2. MIDAZOLAM [Concomitant]
     Active Substance: MIDAZOLAM
     Dates: start: 20251115
  3. FENTANYL [Concomitant]
     Active Substance: FENTANYL
     Dates: start: 20251115
  4. MORPHINE SULFATE [Concomitant]
     Active Substance: MORPHINE SULFATE
     Dates: start: 20251115

REACTIONS (1)
  - Drug effect less than expected [Recovered/Resolved]

NARRATIVE: CASE EVENT DATE: 20251115
